FAERS Safety Report 5135687-1 (Version None)
Quarter: 2006Q4

REPORT INFORMATION
  Report Type: 
  Country: None (occurrence: None)
  Receive Date: 20061026
  Receipt Date: 20061016
  Transmission Date: 20070319
  Serious: Yes (Life-Threatening, Hospitalization)
  Sender: FDA-Public Use
  Company Number: US-JNJFOC-20061005598

PATIENT
  Age: 41 Year
  Sex: Male

DRUGS (1)
  1. FENTANYL CITRATE [Suspect]
     Indication: DRUG USE FOR UNKNOWN INDICATION
     Route: 048

REACTIONS (5)
  - HYPOTENSION [None]
  - INTENTIONAL DRUG MISUSE [None]
  - LIFE SUPPORT [None]
  - SINUS TACHYCARDIA [None]
  - SOMNOLENCE [None]
